FAERS Safety Report 13136899 (Version 4)
Quarter: 2017Q1

REPORT INFORMATION
  Report Type: Spontaneous
  Country: CA (occurrence: CA)
  Receive Date: 20170123
  Receipt Date: 20170322
  Transmission Date: 20170428
  Serious: Yes (Other)
  Sender: FDA-Public Use
  Company Number: CA-GLAXOSMITHKLINE-CA2016GSK079982

PATIENT
  Age: 54 Year
  Sex: Female

DRUGS (10)
  1. NUCALA [Suspect]
     Active Substance: MEPOLIZUMAB
     Dosage: UNK
  2. NUCALA [Suspect]
     Active Substance: MEPOLIZUMAB
     Dosage: UNK
  3. VENTOLIN [Suspect]
     Active Substance: ALBUTEROL SULFATE
     Indication: PRODUCT USED FOR UNKNOWN INDICATION
     Dosage: UNK
  4. NUCALA [Suspect]
     Active Substance: MEPOLIZUMAB
     Dosage: UNK
     Dates: start: 20170117
  5. NUCALA [Suspect]
     Active Substance: MEPOLIZUMAB
     Dosage: 100 MG, AT ONE MONTH
     Dates: start: 20170316
  6. CORTISONE [Concomitant]
     Active Substance: CORTISONE\HYDROCORTISONE
     Indication: PRODUCT USED FOR UNKNOWN INDICATION
     Dosage: UNK
  7. NUCALA [Suspect]
     Active Substance: MEPOLIZUMAB
     Indication: ASTHMA
     Dosage: 100 MG, Z
     Route: 042
     Dates: start: 20160428
  8. NUCALA [Suspect]
     Active Substance: MEPOLIZUMAB
     Dosage: UNK
     Dates: start: 20161221
  9. NUCALA [Suspect]
     Active Substance: MEPOLIZUMAB
     Dosage: 100 MG, AT ONE MONTH
     Dates: start: 20170215
  10. NUCALA [Suspect]
     Active Substance: MEPOLIZUMAB
     Dosage: UNK
     Route: 042

REACTIONS (33)
  - Syncope [Unknown]
  - Cough [Not Recovered/Not Resolved]
  - Ear pain [Unknown]
  - Ear discomfort [Not Recovered/Not Resolved]
  - Productive cough [Not Recovered/Not Resolved]
  - Choking sensation [Unknown]
  - Oral infection [Unknown]
  - Neck pain [Unknown]
  - Nasopharyngitis [Not Recovered/Not Resolved]
  - Throat irritation [Not Recovered/Not Resolved]
  - Blood pressure increased [Unknown]
  - Contusion [Unknown]
  - Multiple allergies [Unknown]
  - Headache [Not Recovered/Not Resolved]
  - Increased viscosity of upper respiratory secretion [Unknown]
  - Upper limb fracture [Unknown]
  - Seasonal allergy [Unknown]
  - Arthralgia [Unknown]
  - Dyspnoea [Unknown]
  - Dizziness [Unknown]
  - Oedema peripheral [Unknown]
  - Lung infection [Unknown]
  - Nausea [Unknown]
  - Muscle spasms [Unknown]
  - Pyrexia [Unknown]
  - Chest discomfort [Unknown]
  - Increased upper airway secretion [Recovered/Resolved]
  - Infection [Unknown]
  - Sputum discoloured [Not Recovered/Not Resolved]
  - Drug ineffective [Unknown]
  - Dysgeusia [Unknown]
  - Influenza [Unknown]
  - Insomnia [Unknown]

NARRATIVE: CASE EVENT DATE: 201604
